FAERS Safety Report 7241610-6 (Version None)
Quarter: 2011Q1

REPORT INFORMATION
  Report Type: 
  Country: None (occurrence: None)
  Receive Date: 20110124
  Receipt Date: 20110113
  Transmission Date: 20110831
  Serious: No
  Sender: FDA-Public Use
  Company Number: IT-ASTRAZENECA-2011SE02165

PATIENT
  Age: 26994 Day
  Sex: Male

DRUGS (5)
  1. BLOPRESS [Concomitant]
     Route: 048
  2. ATENOLOL [Suspect]
     Route: 048
     Dates: start: 20110105, end: 20110107
  3. ATENOLOL [Suspect]
     Indication: HYPERTENSION
     Route: 048
     Dates: start: 20080101, end: 20110105
  4. GARDENALE [Concomitant]
  5. NORVASC [Concomitant]

REACTIONS (1)
  - SINUS BRADYCARDIA [None]
